FAERS Safety Report 4560493-6 (Version None)
Quarter: 2005Q1

REPORT INFORMATION
  Report Type: 
  Country: None (occurrence: None)
  Receive Date: 20050125
  Receipt Date: 20050114
  Transmission Date: 20050727
  Serious: Yes (Life-Threatening, Hospitalization, Disabling)
  Sender: FDA-Public Use
  Company Number: US-MERCK-0501USA02076

PATIENT
  Age: 45 Year
  Sex: Female

DRUGS (3)
  1. VIOXX [Suspect]
     Indication: BACK PAIN
     Route: 048
     Dates: start: 20020101
  2. VICODIN [Concomitant]
     Route: 065
  3. ZOLOFT [Concomitant]
     Route: 065

REACTIONS (1)
  - PALPITATIONS [None]
